FAERS Safety Report 6818748-8 (Version None)
Quarter: 2010Q2

REPORT INFORMATION
  Report Type: 
  Country: None (occurrence: None)
  Receive Date: 20100630
  Receipt Date: 20100615
  Transmission Date: 20101027
  Serious: Yes (Death)
  Sender: FDA-Public Use
  Company Number: 2010AL003598

PATIENT
  Age: 58 Year
  Sex: Male

DRUGS (7)
  1. TRAMADOL HYDROCHLORIDE [Suspect]
  2. DOXEPIN HCL [Concomitant]
  3. TRIMIPRAMINE [Concomitant]
  4. NORDAZEPAM [Concomitant]
  5. BROMAZEPAM [Concomitant]
  6. DIAZEPAM [Concomitant]
  7. METHADONE HCL [Concomitant]

REACTIONS (3)
  - CARDIOMEGALY [None]
  - DRUG SCREEN POSITIVE [None]
  - PNEUMONIA [None]
